FAERS Safety Report 6240234-7 (Version None)
Quarter: 2009Q2

REPORT INFORMATION
  Report Type: 
  Country: None (occurrence: None)
  Receive Date: 20090623
  Receipt Date: 20080423
  Transmission Date: 20091009
  Serious: No
  Sender: FDA-Public Use
  Company Number: US-ASTRAZENECA-2008UW08267

PATIENT
  Age: 57 Year
  Sex: Female
  Weight: 46.3 kg

DRUGS (7)
  1. PULMICORT RESPULES [Suspect]
     Indication: CHRONIC OBSTRUCTIVE PULMONARY DISEASE
     Route: 055
     Dates: start: 20080101
  2. NEXIUM [Suspect]
     Route: 048
  3. TOPAMAX [Concomitant]
  4. IMITREX [Concomitant]
  5. ARIMIDEX [Concomitant]
     Route: 048
  6. BONIVA [Concomitant]
  7. PROAIR HFA [Concomitant]

REACTIONS (2)
  - ALOPECIA [None]
  - CANDIDIASIS [None]
